FAERS Safety Report 18440884 (Version 4)
Quarter: 2021Q3

REPORT INFORMATION
  Report Type: Spontaneous
  Country: US (occurrence: US)
  Receive Date: 20201029
  Receipt Date: 20210811
  Transmission Date: 20211014
  Serious: Yes (Hospitalization, Other)
  Sender: FDA-Public Use
  Company Number: US-PFIZER INC-2020415781

PATIENT
  Age: 65 Year
  Sex: Female
  Weight: 34.92 kg

DRUGS (2)
  1. XELJANZ [Suspect]
     Active Substance: TOFACITINIB CITRATE
     Dosage: 5 MG, 2X/DAY
     Route: 048
     Dates: start: 202008
  2. XELJANZ [Suspect]
     Active Substance: TOFACITINIB CITRATE
     Indication: COLITIS ULCERATIVE
     Dosage: 10 MG, 2X/DAY
     Route: 048
     Dates: start: 202008

REACTIONS (11)
  - Gastric disorder [Unknown]
  - Arthralgia [Unknown]
  - Therapeutic product effect decreased [Unknown]
  - Back pain [Unknown]
  - Clostridium difficile infection [Unknown]
  - Nausea [Recovered/Resolved]
  - Polyp [Unknown]
  - Abdominal pain [Unknown]
  - Muscle atrophy [Unknown]
  - Rash pruritic [Unknown]
  - Asthenia [Unknown]

NARRATIVE: CASE EVENT DATE: 202106
